FAERS Safety Report 18637394 (Version 1)
Quarter: 2020Q4

REPORT INFORMATION
  Report Type: Other
  Country: GB (occurrence: GB)
  Receive Date: 20201219
  Receipt Date: 20201219
  Transmission Date: 20210114
  Serious: Yes (Other)
  Sender: FDA-Public Use
  Company Number: GB-ROCHE-1856218

PATIENT
  Sex: Female

DRUGS (6)
  1. CALCICHEW [Concomitant]
     Active Substance: CALCIUM CARBONATE
  2. TRAMADOL. [Concomitant]
     Active Substance: TRAMADOL
  3. ETOPAN [Concomitant]
     Active Substance: ETODOLAC
  4. ROACTEMRA [Suspect]
     Active Substance: TOCILIZUMAB
     Indication: RHEUMATOID ARTHRITIS
     Route: 058
     Dates: start: 2019
  5. OMEPRAZOLE. [Concomitant]
     Active Substance: OMEPRAZOLE
  6. PREDNISOLONE. [Concomitant]
     Active Substance: PREDNISOLONE

REACTIONS (3)
  - Infection [Unknown]
  - Infected skin ulcer [Unknown]
  - Wound [Unknown]
